FAERS Safety Report 10215735 (Version 4)
Quarter: 2014Q3

REPORT INFORMATION
  Report Type: Spontaneous
  Country: US (occurrence: None)
  Receive Date: 20140602
  Receipt Date: 20140819
  Transmission Date: 20150326
  Serious: Yes (Hospitalization, Congenital Anomaly, Other)
  Sender: FDA-Public Use
  Company Number: 2014AP003105

PATIENT
  Age: 12 Year
  Sex: Male

DRUGS (1)
  1. PAXIL CR [Suspect]
     Active Substance: PAROXETINE HYDROCHLORIDE
     Indication: ANXIETY
     Dosage: 20 MG, UNK, TRANSPLACENTAL
     Route: 064
     Dates: start: 19970729, end: 19971007

REACTIONS (9)
  - Ventricular septal defect [None]
  - Foetal exposure during pregnancy [None]
  - Cardiac murmur [None]
  - Deformity [None]
  - Pain [None]
  - Injury [None]
  - Anxiety [None]
  - Neonatal respiratory distress syndrome [None]
  - Quality of life decreased [None]

NARRATIVE: CASE EVENT DATE: 20140314
